FAERS Safety Report 8921672 (Version 2)
Quarter: 2012Q4

REPORT INFORMATION
  Report Type: Report from Study
  Country: CA (occurrence: CA)
  Receive Date: 20121121
  Receipt Date: 20121226
  Transmission Date: 20130627
  Serious: Yes (Hospitalization, Other)
  Sender: FDA-Public Use
  Company Number: CA-JNJFOC-20120703167

PATIENT
  Age: 70 Year
  Sex: Male
  Weight: 73 kg

DRUGS (2)
  1. REMICADE [Suspect]
     Indication: CROHN^S DISEASE
     Route: 042
     Dates: start: 20090916
  2. REMICADE [Suspect]
     Indication: ANKYLOSING SPONDYLITIS
     Route: 042
     Dates: start: 20090916

REACTIONS (2)
  - Hip arthroplasty [Not Recovered/Not Resolved]
  - Cholecystitis [Not Recovered/Not Resolved]
